FAERS Safety Report 14742383 (Version 4)
Quarter: 2021Q1

REPORT INFORMATION
  Report Type: Spontaneous
  Country: US (occurrence: US)
  Receive Date: 20180410
  Receipt Date: 20210324
  Transmission Date: 20210419
  Serious: Yes (Hospitalization, Other)
  Sender: FDA-Public Use
  Company Number: US-ASTRAZENECA-2018SE42851

PATIENT
  Age: 17312 Day
  Sex: Female
  Weight: 127 kg

DRUGS (107)
  1. PRILOSEC [Suspect]
     Active Substance: OMEPRAZOLE MAGNESIUM
     Indication: GASTROOESOPHAGEAL REFLUX DISEASE
     Route: 048
     Dates: start: 201412, end: 201502
  2. PREVACID 24 HR [Suspect]
     Active Substance: LANSOPRAZOLE
     Route: 065
     Dates: start: 201409, end: 201502
  3. PROTONIX [Suspect]
     Active Substance: PANTOPRAZOLE SODIUM
     Indication: GASTROOESOPHAGEAL REFLUX DISEASE
     Dosage: VIAL
     Route: 065
     Dates: start: 20150801, end: 20151118
  4. LYRICA [Concomitant]
     Active Substance: PREGABALIN
  5. METFORMIN [Concomitant]
     Active Substance: METFORMIN HYDROCHLORIDE
  6. ROLAIDS [Concomitant]
     Active Substance: CALCIUM CARBONATE\MAGNESIUM HYDROXIDE
  7. PERCOCET [Concomitant]
     Active Substance: ACETAMINOPHEN\OXYCODONE HYDROCHLORIDE
  8. FLAGYL [Concomitant]
     Active Substance: METRONIDAZOLE\METRONIDAZOLE HYDROCHLORIDE
  9. CETIRIZINE HYDROCHLORIDE. [Concomitant]
     Active Substance: CETIRIZINE HYDROCHLORIDE
  10. PREDNISONE. [Concomitant]
     Active Substance: PREDNISONE
  11. CAPTOMYCIN [Concomitant]
  12. CITRATE OF MAGNESIUM [Concomitant]
     Active Substance: MAGNESIUM CITRATE
  13. TETRACYCLINE [Concomitant]
     Active Substance: TETRACYCLINE
  14. FLORASTOR [Concomitant]
     Active Substance: SACCHAROMYCES CEREVISIAE
  15. NEXIUM [Suspect]
     Active Substance: ESOMEPRAZOLE MAGNESIUM
     Route: 048
  16. PRILOSEC [Suspect]
     Active Substance: OMEPRAZOLE MAGNESIUM
     Indication: GASTROOESOPHAGEAL REFLUX DISEASE
     Route: 048
     Dates: start: 20141215, end: 20150813
  17. PRILOSEC OTC [Suspect]
     Active Substance: OMEPRAZOLE MAGNESIUM
     Route: 048
  18. PROTONIX [Suspect]
     Active Substance: PANTOPRAZOLE SODIUM
     Indication: GASTROOESOPHAGEAL REFLUX DISEASE
     Route: 065
     Dates: start: 20150731, end: 20151122
  19. LANTUS SOLOSTAR [Concomitant]
     Active Substance: INSULIN GLARGINE
  20. MILK OF MAGNESIA [Concomitant]
     Active Substance: MAGNESIUM HYDROXIDE
  21. HUMULIN NOS [Concomitant]
     Active Substance: INSULIN HUMAN
  22. OXYCODONE [Concomitant]
     Active Substance: OXYCODONE
  23. APIXABAN [Concomitant]
     Active Substance: APIXABAN
  24. TRAZODONE [Concomitant]
     Active Substance: TRAZODONE HYDROCHLORIDE
  25. RISPERDAL [Concomitant]
     Active Substance: RISPERIDONE
  26. SODIUM CHLORIDE. [Concomitant]
     Active Substance: SODIUM CHLORIDE
  27. CALAMINE [Concomitant]
     Active Substance: CALAMINE\FERRIC OXIDE RED\ZINC OXIDE
  28. FIORICET [Concomitant]
     Active Substance: ACETAMINOPHEN\BUTALBITAL\CAFFEINE
  29. SERTRALINE [Concomitant]
     Active Substance: SERTRALINE HYDROCHLORIDE
  30. VERSED [Concomitant]
     Active Substance: MIDAZOLAM HYDROCHLORIDE
  31. VERAPAMIL [Concomitant]
     Active Substance: VERAPAMIL HYDROCHLORIDE
  32. HYDROMORPHONE [Concomitant]
     Active Substance: HYDROMORPHONE
  33. PREVACID [Suspect]
     Active Substance: LANSOPRAZOLE
     Route: 065
  34. FLONASE [Concomitant]
     Active Substance: FLUTICASONE PROPIONATE
  35. BUSPAR [Concomitant]
     Active Substance: BUSPIRONE HYDROCHLORIDE
  36. ADVAIR DISKUS [Concomitant]
     Active Substance: FLUTICASONE PROPIONATE\SALMETEROL XINAFOATE
  37. TESSALON [Concomitant]
     Active Substance: BENZONATATE
  38. NEXIUM [Suspect]
     Active Substance: ESOMEPRAZOLE MAGNESIUM
     Route: 048
     Dates: start: 201409, end: 201502
  39. PRILOSEC OTC [Suspect]
     Active Substance: OMEPRAZOLE MAGNESIUM
     Route: 048
     Dates: start: 201409, end: 201502
  40. PREVACID [Suspect]
     Active Substance: LANSOPRAZOLE
     Route: 065
     Dates: start: 201409, end: 201502
  41. PROTONIX [Suspect]
     Active Substance: PANTOPRAZOLE SODIUM
     Indication: GASTROOESOPHAGEAL REFLUX DISEASE
     Dosage: GENERIC
     Route: 065
     Dates: start: 20150814, end: 20150820
  42. SIMVASTATIN. [Concomitant]
     Active Substance: SIMVASTATIN
     Indication: BLOOD CHOLESTEROL INCREASED
  43. ULTRAM [Concomitant]
     Active Substance: TRAMADOL HYDROCHLORIDE
     Indication: ARTHRITIS
  44. FUROSEMIDE. [Concomitant]
     Active Substance: FUROSEMIDE
     Indication: OEDEMA
  45. TUMS [Concomitant]
     Active Substance: CALCIUM CARBONATE
  46. BYDUREON [Concomitant]
     Active Substance: EXENATIDE
  47. METRONIDAZOLE. [Concomitant]
     Active Substance: METRONIDAZOLE
  48. SELENIUM SULFIDE. [Concomitant]
     Active Substance: SELENIUM SULFIDE
  49. STATIN [Concomitant]
     Active Substance: UNSPECIFIED INGREDIENT
  50. SIMETHICONE (DIMETHICONE) [Concomitant]
     Active Substance: DIMETHICONE
  51. HYDROCORTISONE. [Concomitant]
     Active Substance: HYDROCORTISONE
  52. DIPHENHYDRAMINE. [Concomitant]
     Active Substance: DIPHENHYDRAMINE
  53. DUONEB [Concomitant]
     Active Substance: ALBUTEROL SULFATE\IPRATROPIUM BROMIDE
  54. IODINOL [Concomitant]
  55. PREVACID 24 HR [Suspect]
     Active Substance: LANSOPRAZOLE
     Route: 065
  56. ZITHROMAX [Concomitant]
     Active Substance: AZITHROMYCIN DIHYDRATE
  57. GABAPENTIN. [Concomitant]
     Active Substance: GABAPENTIN
  58. ACETAMINOPHEN. [Concomitant]
     Active Substance: ACETAMINOPHEN
     Indication: HEADACHE
  59. BENADRYL [Concomitant]
     Active Substance: DIPHENHYDRAMINE HYDROCHLORIDE
     Indication: HYPERSENSITIVITY
  60. RANITIDINE. [Concomitant]
     Active Substance: RANITIDINE
  61. DILTIAZEM. [Concomitant]
     Active Substance: DILTIAZEM
  62. ZOLOFT [Concomitant]
     Active Substance: SERTRALINE HYDROCHLORIDE
  63. CYCLOBENZAPRINE HYDROCHLORIDE. [Concomitant]
     Active Substance: CYCLOBENZAPRINE HYDROCHLORIDE
  64. DIFLUCAN [Concomitant]
     Active Substance: FLUCONAZOLE
  65. HEPARIN [Concomitant]
     Active Substance: HEPARIN SODIUM
  66. NEXIUM 24HR [Suspect]
     Active Substance: ESOMEPRAZOLE MAGNESIUM
     Route: 048
     Dates: start: 201409, end: 201502
  67. PROTONIX [Suspect]
     Active Substance: PANTOPRAZOLE SODIUM
     Indication: GASTROOESOPHAGEAL REFLUX DISEASE
     Route: 065
     Dates: start: 201409, end: 201502
  68. HYDROCHLOROTHIAZIDE. [Concomitant]
     Active Substance: HYDROCHLOROTHIAZIDE
  69. DOXYCYCLINE. [Concomitant]
     Active Substance: DOXYCYCLINE
     Indication: TOOTH INFECTION
  70. LARITUS [Concomitant]
     Indication: OEDEMA
  71. NOVOLOG [Concomitant]
     Active Substance: INSULIN ASPART
     Indication: DIABETES MELLITUS
  72. FAMOTIDINE. [Concomitant]
     Active Substance: FAMOTIDINE
  73. PEPTO?BISMOL [Concomitant]
     Active Substance: BISMUTH SUBSALICYLATE
  74. CALCIUM [Concomitant]
     Active Substance: CALCIUM
  75. COLACE [Concomitant]
     Active Substance: DOCUSATE SODIUM
  76. MORPHINE [Concomitant]
     Active Substance: MORPHINE
  77. VISTARIL [Concomitant]
     Active Substance: HYDROXYZINE PAMOATE
  78. AMIODARONE HYDROCHORIDE [Concomitant]
  79. CARDIZEM [Concomitant]
     Active Substance: DILTIAZEM HYDROCHLORIDE
  80. SENNA [Concomitant]
     Active Substance: SENNA LEAF\SENNOSIDES\SENNOSIDES A AND B
  81. DEXILANT [Suspect]
     Active Substance: DEXLANSOPRAZOLE
     Route: 065
     Dates: start: 201409, end: 201502
  82. ALBUTEROL. [Concomitant]
     Active Substance: ALBUTEROL
  83. CYCLOBENZAPRINE. [Concomitant]
     Active Substance: CYCLOBENZAPRINE
  84. TRAMADOL. [Concomitant]
     Active Substance: TRAMADOL
     Indication: ARTHRITIS
  85. MELOXICAM. [Concomitant]
     Active Substance: MELOXICAM
     Indication: ARTHRITIS
  86. VANCOMYCIN [Concomitant]
     Active Substance: VANCOMYCIN
     Indication: BACTERIAL INFECTION
  87. LORATIDINE [Concomitant]
     Active Substance: LORATADINE
     Indication: MULTIPLE ALLERGIES
  88. FENTANYL. [Concomitant]
     Active Substance: FENTANYL
  89. POLYETHYLENE GLYCOL [Concomitant]
     Active Substance: POLYETHYLENE GLYCOLS
  90. LINEZOLID. [Concomitant]
     Active Substance: LINEZOLID
  91. GLUCOSE [Concomitant]
     Active Substance: DEXTROSE
  92. SOMA [Concomitant]
     Active Substance: CARISOPRODOL
  93. CYMBALTA [Concomitant]
     Active Substance: DULOXETINE HYDROCHLORIDE
  94. PRILOSEC [Suspect]
     Active Substance: OMEPRAZOLE MAGNESIUM
     Indication: GASTROOESOPHAGEAL REFLUX DISEASE
     Route: 048
     Dates: start: 201409, end: 201502
  95. PRILOSEC [Suspect]
     Active Substance: OMEPRAZOLE MAGNESIUM
     Indication: GASTROOESOPHAGEAL REFLUX DISEASE
     Route: 048
     Dates: start: 20140821, end: 20151122
  96. PRILOSEC [Suspect]
     Active Substance: OMEPRAZOLE MAGNESIUM
     Indication: GASTROOESOPHAGEAL REFLUX DISEASE
     Dosage: GENERIC
     Route: 065
     Dates: start: 20140821
  97. CETIRIZINE [Concomitant]
     Active Substance: CETIRIZINE HYDROCHLORIDE
     Indication: MULTIPLE ALLERGIES
  98. LISINOPRIL. [Concomitant]
     Active Substance: LISINOPRIL
     Indication: HYPERTENSION
  99. IBUPROFEN. [Concomitant]
     Active Substance: IBUPROFEN
     Indication: PAIN
  100. AMIODARONE [Concomitant]
     Active Substance: AMIODARONE
  101. POTASSIUM CHLORIDE. [Concomitant]
     Active Substance: POTASSIUM CHLORIDE
  102. NAPROXEN. [Concomitant]
     Active Substance: NAPROXEN
  103. METFORMIN HYDROCHLORIDE. [Concomitant]
     Active Substance: METFORMIN HYDROCHLORIDE
  104. MAGNESIUM OXIDE. [Concomitant]
     Active Substance: MAGNESIUM OXIDE
  105. VITAMIN D [Concomitant]
     Active Substance: VITAMIN D NOS
  106. RESTORIL [Concomitant]
     Active Substance: TEMAZEPAM
  107. NEXIUM 24HR [Suspect]
     Active Substance: ESOMEPRAZOLE MAGNESIUM
     Route: 048

REACTIONS (4)
  - Gastrooesophageal reflux disease [Not Recovered/Not Resolved]
  - End stage renal disease [Unknown]
  - Renal injury [Unknown]
  - Acute kidney injury [Not Recovered/Not Resolved]

NARRATIVE: CASE EVENT DATE: 20150813
